FAERS Safety Report 17883416 (Version 2)
Quarter: 2020Q4

REPORT INFORMATION
  Report Type: Report from Study
  Country: CA (occurrence: CA)
  Receive Date: 20200611
  Receipt Date: 20201210
  Transmission Date: 20210113
  Serious: Yes (Hospitalization, Other)
  Sender: FDA-Public Use
  Company Number: CA-ROCHE-2616229

PATIENT
  Age: 62 Year
  Sex: Female
  Weight: 79.7 kg

DRUGS (4)
  1. BEVACIZUMAB. [Suspect]
     Active Substance: BEVACIZUMAB
     Dosage: TOTAL DOSE ADMINISTERED THIS COURSE:795 MG
     Route: 042
     Dates: start: 20200108
  2. PACLITAXEL. [Suspect]
     Active Substance: PACLITAXEL
     Indication: OVARIAN EPITHELIAL CANCER
     Dosage: TOTAL DOSE ADMINISTERED THIS COURSE: 296 MG?DATE OF LAST DOSE ADMINISTERED: 15/JAN/2020
     Route: 042
     Dates: start: 20200108
  3. BEVACIZUMAB. [Suspect]
     Active Substance: BEVACIZUMAB
     Indication: OVARIAN EPITHELIAL CANCER
     Dosage: TOTAL DOSE ADMINISTERED THIS COURSE: 795 MG?DATE OF LAST DOSE ADMINISTERED: 08/JAN/2020
     Route: 042
     Dates: start: 20200302
  4. TYLENOL [Concomitant]
     Active Substance: ACETAMINOPHEN

REACTIONS (2)
  - Abdominal pain [Not Recovered/Not Resolved]
  - Anaemia [Unknown]

NARRATIVE: CASE EVENT DATE: 20200119
